FAERS Safety Report 21436392 (Version 4)
Quarter: 2022Q4

REPORT INFORMATION
  Report Type: Spontaneous
  Country: US (occurrence: US)
  Receive Date: 20221010
  Receipt Date: 20221227
  Transmission Date: 20230113
  Serious: Yes (Hospitalization, Other)
  Sender: FDA-Public Use
  Company Number: US-BRISTOL-MYERS SQUIBB COMPANY-2022-116033

PATIENT
  Age: 83 Year
  Sex: Female

DRUGS (1)
  1. POMALYST [Suspect]
     Active Substance: POMALIDOMIDE
     Indication: Bladder cancer
     Dosage: ON DAYS 1-21 REPEAT EVERY 28 DAYS, TAKE 1 CAPSULE BY MOUTH EVERY DAY FOR 21 DAYS ON WITH 7 DAYS OFF
     Route: 048
     Dates: start: 20160314

REACTIONS (2)
  - Cellulitis [Not Recovered/Not Resolved]
  - Off label use [Unknown]
